FAERS Safety Report 12184851 (Version 1)
Quarter: 2016Q1

REPORT INFORMATION
  Report Type: Spontaneous
  Country: IR (occurrence: IR)
  Receive Date: 20160316
  Receipt Date: 20160316
  Transmission Date: 20160526
  Serious: Yes (Other)
  Sender: FDA-Public Use
  Company Number: IR-WATSON-2016-05478

PATIENT
  Age: 50 Year
  Sex: Male

DRUGS (2)
  1. LIDOCAINE (UNKNOWN) [Suspect]
     Active Substance: LIDOCAINE
     Indication: CATARACT OPERATION
     Dosage: 0.5 CC OF LIDOCAINE 1%
     Route: 031
  2. LIDOCAINE (UNKNOWN) [Suspect]
     Active Substance: LIDOCAINE
     Dosage: 0.5 CC OF LIDOCAINE 1%
     Route: 031

REACTIONS (2)
  - Blindness transient [Recovered/Resolved]
  - Retinal toxicity [Recovered/Resolved]
